FAERS Safety Report 11703708 (Version 1)
Quarter: 2015Q4

REPORT INFORMATION
  Report Type: Spontaneous
  Country: US (occurrence: US)
  Receive Date: 20151106
  Receipt Date: 20151106
  Transmission Date: 20160304
  Serious: No
  Sender: FDA-Public Use
  Company Number: US-009507513-1511USA002521

PATIENT

DRUGS (1)
  1. ZERBAXA [Suspect]
     Active Substance: CEFTOLOZANE SULFATE\TAZOBACTAM SODIUM
     Indication: BACTERAEMIA

REACTIONS (3)
  - No adverse event [Unknown]
  - Drug prescribing error [Unknown]
  - Product use issue [Unknown]
